FAERS Safety Report 8000513 (Version 2)
Quarter: 2017Q2

REPORT INFORMATION
  Report Type: Report from Study
  Country: US (occurrence: US)
  Receive Date: 20110621
  Receipt Date: 20170607
  Transmission Date: 20170830
  Serious: No
  Sender: FDA-Public Use
  Company Number: US-ASTRAZENECA-2010SE60371

PATIENT
  Age: 61 Year
  Sex: Female

DRUGS (1)
  1. ATACAND HCT [Suspect]
     Active Substance: CANDESARTAN CILEXETIL\HYDROCHLOROTHIAZIDE
     Dosage: 16+12.5 MG
     Route: 048

REACTIONS (4)
  - Hypertension [Unknown]
  - Nervousness [Unknown]
  - Nervous system disorder [Unknown]
  - Drug dose omission [Unknown]
